FAERS Safety Report 23881739 (Version 1)
Quarter: 2024Q2

REPORT INFORMATION
  Report Type: Spontaneous
  Country: US (occurrence: US)
  Receive Date: 20240521
  Receipt Date: 20240521
  Transmission Date: 20240715
  Serious: No
  Sender: FDA-Public Use
  Company Number: US-SA-SAC20240520000063

PATIENT
  Age: 62 Year
  Sex: Female

DRUGS (6)
  1. DUPIXENT [Suspect]
     Active Substance: DUPILUMAB
     Indication: Asthma
     Dosage: 300 MG, QOW
     Route: 058
     Dates: start: 20240227
  2. CORTICOSTEROID NOS [Concomitant]
     Active Substance: CORTICOSTEROID NOS
  3. CALCIUM\VITAMIN D [Concomitant]
     Active Substance: CALCIUM\VITAMIN D
     Dosage: UNK
  4. VITAMINS [Concomitant]
     Active Substance: VITAMINS
     Dosage: QD
  5. VITAMIN D NOS [Concomitant]
     Active Substance: CHOLECALCIFEROL\ERGOCALCIFEROL
     Dosage: 50000 UNIT
  6. CODEINE SULFATE [Concomitant]
     Active Substance: CODEINE SULFATE
     Dosage: 30 MG

REACTIONS (2)
  - Impaired quality of life [Unknown]
  - Oral herpes [Unknown]

NARRATIVE: CASE EVENT DATE: 20240501
